FAERS Safety Report 14295386 (Version 7)
Quarter: 2018Q2

REPORT INFORMATION
  Report Type: Spontaneous
  Country: US (occurrence: US)
  Receive Date: 20171218
  Receipt Date: 20180508
  Transmission Date: 20180711
  Serious: No
  Sender: FDA-Public Use
  Company Number: US-PFIZER INC-2017536291

PATIENT
  Age: 61 Year
  Sex: Female
  Weight: 54 kg

DRUGS (4)
  1. LYRICA [Suspect]
     Active Substance: PREGABALIN
     Indication: OSTEOARTHRITIS
     Dosage: 75 MG, 2X/DAY
     Route: 048
  2. NADOLOL. [Concomitant]
     Active Substance: NADOLOL
     Indication: MITRAL VALVE PROLAPSE
     Dosage: 20 MG, ONCE A DAY
     Route: 048
  3. LYRICA [Suspect]
     Active Substance: PREGABALIN
     Indication: FIBROMYALGIA
     Dosage: 50 MG, ONCE A DAY
  4. LYRICA [Suspect]
     Active Substance: PREGABALIN
     Indication: ARTHRITIS
     Dosage: 100 MG, DAILY (REPORTED AS 2)
     Dates: start: 20171206

REACTIONS (3)
  - Intentional product use issue [Unknown]
  - Drug ineffective [Recovered/Resolved]
  - Nasopharyngitis [Unknown]
